FAERS Safety Report 16362198 (Version 1)
Quarter: 2019Q2

REPORT INFORMATION
  Report Type: Spontaneous
  Country: US (occurrence: US)
  Receive Date: 20190515
  Receipt Date: 20190515
  Transmission Date: 20190711
  Serious: No
  Sender: FDA-Public Use
  Company Number: None

PATIENT
  Age: 86 Year
  Sex: Female
  Weight: 64.86 kg

DRUGS (2)
  1. BLOOD PRESSURE MEDICENE [Concomitant]
  2. PROPYLENE GLYCOL [Suspect]
     Active Substance: PROPYLENE GLYCOL

REACTIONS (2)
  - Drug hypersensitivity [None]
  - Intercepted product prescribing error [None]
